FAERS Safety Report 4819519-4 (Version None)
Quarter: 2005Q4

REPORT INFORMATION
  Report Type: 
  Country: None (occurrence: None)
  Receive Date: 20051103
  Receipt Date: 20050322
  Transmission Date: 20060501
  Serious: Yes (Life-Threatening, Hospitalization, Other)
  Sender: FDA-Public Use
  Company Number: 2005AP01822

PATIENT
  Age: 20718 Day
  Sex: Female
  Weight: 63 kg

DRUGS (3)
  1. IRESSA [Suspect]
     Indication: NON-SMALL CELL LUNG CANCER
     Route: 048
     Dates: start: 20050212
  2. IRESSA [Suspect]
     Indication: LUNG ADENOCARCINOMA
     Route: 048
     Dates: start: 20050212
  3. CISPLATIN [Concomitant]

REACTIONS (2)
  - BRAIN HYPOXIA [None]
  - TRANSIENT ISCHAEMIC ATTACK [None]
